FAERS Safety Report 5917286-4 (Version None)
Quarter: 2008Q4

REPORT INFORMATION
  Report Type: 
  Country: None (occurrence: None)
  Receive Date: 20081014
  Receipt Date: 20081002
  Transmission Date: 20090506
  Serious: Yes (Hospitalization, Disabling, Other)
  Sender: FDA-Public Use
  Company Number: US-ELI_LILLY_AND_COMPANY-US200810000631

PATIENT
  Age: 81 Year
  Sex: Female

DRUGS (6)
  1. EVISTA [Suspect]
     Indication: OSTEOPOROSIS
     Dosage: 60 MG, DAILY (1/D)
     Route: 065
     Dates: start: 19981001
  2. KEPPRA [Concomitant]
     Indication: CONVULSION
     Dosage: UNK, UNKNOWN
     Route: 065
  3. COUMADIN [Concomitant]
     Dosage: UNK, UNKNOWN
     Route: 065
  4. METOPROLOL TARTRATE [Concomitant]
     Dosage: UNK, UNKNOWN
     Route: 065
  5. LIPITOR [Concomitant]
     Dosage: UNK, UNKNOWN
     Route: 065
  6. BONIVA [Concomitant]
     Indication: OSTEOPOROSIS
     Dosage: UNK, MONTHLY (1/M)
     Route: 065

REACTIONS (2)
  - CEREBROVASCULAR ACCIDENT [None]
  - MITRAL VALVE REPLACEMENT [None]
